FAERS Safety Report 14153400 (Version 1)
Quarter: 2017Q4

REPORT INFORMATION
  Report Type: Spontaneous
  Country: US (occurrence: US)
  Receive Date: 20171102
  Receipt Date: 20171102
  Transmission Date: 20180321
  Serious: No
  Sender: FDA-Public Use
  Company Number: US-SA-2017SA150938

PATIENT
  Age: 84 Year
  Sex: Male
  Weight: 82 kg

DRUGS (52)
  1. ALIROCUMAB PREFILLED PEN [Suspect]
     Active Substance: ALIROCUMAB
     Dates: start: 20170320, end: 20170815
  2. ATORVASTATIN [Concomitant]
     Active Substance: ATORVASTATIN
     Dosage: STRENGTH:40 MG
     Route: 065
  3. SUCRALFATE. [Concomitant]
     Active Substance: SUCRALFATE
     Route: 065
  4. PREDNISONE. [Concomitant]
     Active Substance: PREDNISONE
     Route: 048
  5. ZYRTEC [Concomitant]
     Active Substance: CETIRIZINE HYDROCHLORIDE
     Route: 048
  6. CALCITRIOL. [Concomitant]
     Active Substance: CALCITRIOL
     Route: 048
  7. DOCUSATE SODIUM. [Concomitant]
     Active Substance: DOCUSATE SODIUM
     Route: 048
  8. LASIX [Concomitant]
     Active Substance: FUROSEMIDE
     Route: 048
  9. ACYCLOVIR. [Concomitant]
     Active Substance: ACYCLOVIR
     Route: 048
  10. PANTHENOL/RETINOL/THIAMINE HYDROCHLORIDE/ASCORBIC ACID/ERGOCALCIFEROL/FOLIC ACID/RIBOFLAVIN/NICOTINA [Concomitant]
     Route: 048
  11. CARTEOLOL [Concomitant]
     Active Substance: CARTEOLOL
     Dosage: SOL 1%OP
     Route: 065
  12. PANTOPRAZOLE [Concomitant]
     Active Substance: PANTOPRAZOLE
     Dosage: AB 40 MG
     Route: 048
  13. TAMSULOSIN [Concomitant]
     Active Substance: TAMSULOSIN
     Dosage: 0.4 MG
     Route: 065
  14. CARAFATE [Concomitant]
     Active Substance: SUCRALFATE
     Route: 048
  15. GUAIFENESIN. [Concomitant]
     Active Substance: GUAIFENESIN
     Route: 048
  16. KLOR-CON [Concomitant]
     Active Substance: POTASSIUM CHLORIDE
     Route: 048
  17. NORTRIPTYLINE [Concomitant]
     Active Substance: NORTRIPTYLINE
  18. DICLOFENAC [Concomitant]
     Active Substance: DICLOFENAC
     Dosage: 1%
     Route: 065
  19. ISOSORBIDE MONONITRATE. [Concomitant]
     Active Substance: ISOSORBIDE MONONITRATE
     Dosage: STRENGTH:60 MG
     Route: 065
  20. HYDROCODONE BITARTRATE AND ACETAMINOPHEN [Concomitant]
     Active Substance: ACETAMINOPHEN\HYDROCODONE BITARTRATE
     Dosage: 10-325 MG
     Route: 065
  21. ALLOPURINOL. [Concomitant]
     Active Substance: ALLOPURINOL
  22. ASPIRIN. [Concomitant]
     Active Substance: ASPIRIN
     Route: 048
  23. DULCOLAX NOS [Concomitant]
     Active Substance: BISACODYL OR DOCUSATE SODIUM
     Route: 048
  24. CARTEOLOL [Concomitant]
     Active Substance: CARTEOLOL
  25. HYDROCHLOROTHIAZIDE WITH TRIAMTERENE [Concomitant]
     Active Substance: HYDROCHLOROTHIAZIDE\TRIAMTERENE
     Route: 048
  26. NORCO [Concomitant]
     Active Substance: ACETAMINOPHEN\HYDROCODONE BITARTRATE
     Dosage: 4-6 HRS PRN
     Route: 048
  27. CARVEDILOL. [Concomitant]
     Active Substance: CARVEDILOL
     Dosage: STRENGTH:25 MG
     Route: 065
  28. TRAZODONE [Concomitant]
     Active Substance: TRAZODONE HYDROCHLORIDE
     Dosage: 50 MG
     Route: 065
  29. VOLTAREN [Concomitant]
     Active Substance: DICLOFENAC SODIUM
     Dosage: 1%
     Route: 065
  30. FERROUS SULFATE. [Concomitant]
     Active Substance: FERROUS SULFATE
  31. PRALUENT [Suspect]
     Active Substance: ALIROCUMAB
     Route: 058
     Dates: start: 20170320, end: 20170815
  32. COLCHICINE. [Concomitant]
     Active Substance: COLCHICINE
  33. CIALIS [Concomitant]
     Active Substance: TADALAFIL
     Route: 048
  34. COREG [Concomitant]
     Active Substance: CARVEDILOL
     Route: 048
  35. TESTOSTERONE. [Concomitant]
     Active Substance: TESTOSTERONE
     Dosage: IMPLANT EVERY 6 MONTHS
  36. DOXYCYCLINE MONOHYDRATE [Concomitant]
     Active Substance: DOXYCYCLINE
     Dosage: STRENGTH: 100 MG
     Route: 065
  37. TIMOLOL. [Concomitant]
     Active Substance: TIMOLOL
  38. NITROGLYCERIN. [Concomitant]
     Active Substance: NITROGLYCERIN
  39. ATENOLOL. [Concomitant]
     Active Substance: ATENOLOL
     Route: 048
  40. DOXYCYCLINE MONOHYDRATE [Concomitant]
     Active Substance: DOXYCYCLINE
     Dosage: Q 12 HRS FOR 2 WEEKS
     Route: 048
  41. ISOSORBIDE DINITRATE. [Concomitant]
     Active Substance: ISOSORBIDE DINITRATE
     Dosage: STRENGTH:10 MG
     Route: 065
  42. TORSEMIDE. [Concomitant]
     Active Substance: TORSEMIDE
     Dosage: 20 MG
     Route: 065
  43. BUPROPION. [Concomitant]
     Active Substance: BUPROPION
  44. AMIODARONE [Concomitant]
     Active Substance: AMIODARONE
     Dosage: STRENGTH :200 MG
     Route: 065
  45. SPIRONOLACT [Concomitant]
     Active Substance: SPIRONOLACTONE
     Dosage: 25 MG
     Route: 065
  46. VITAMIN D3 [Concomitant]
     Active Substance: CHOLECALCIFEROL
     Route: 048
  47. SELENIUM SULFIDE. [Concomitant]
     Active Substance: SELENIUM SULFIDE
  48. AQUAPHOR [Concomitant]
     Active Substance: PETROLATUM
  49. LOSARTAN POTASSIUM. [Concomitant]
     Active Substance: LOSARTAN POTASSIUM
     Route: 048
  50. ALBUTEROL SULFATE. [Concomitant]
     Active Substance: ALBUTEROL SULFATE
  51. MECLIZINE [Concomitant]
     Active Substance: MECLIZINE HYDROCHLORIDE
     Dosage: TID/PRN
     Route: 048
  52. THYROID [Concomitant]
     Active Substance: LEVOTHYROXINE\LIOTHYRONINE
     Route: 048

REACTIONS (4)
  - Irritability [Recovered/Resolved]
  - Condition aggravated [Recovered/Resolved]
  - Confusional state [Recovered/Resolved]
  - Amnesia [Recovered/Resolved]

NARRATIVE: CASE EVENT DATE: 2017
